FAERS Safety Report 9630589 (Version 1)
Quarter: 2013Q4

REPORT INFORMATION
  Report Type: Spontaneous
  Country: US (occurrence: None)
  Receive Date: 20131015
  Receipt Date: 20131015
  Transmission Date: 20140711
  Serious: Yes (Death)
  Sender: FDA-Public Use
  Company Number: 2013AP008638

PATIENT
  Age: 49 Year
  Sex: Male

DRUGS (6)
  1. TRAMADOL HYDROCHLORIDE [Suspect]
     Route: 048
  2. TAPENTADOL [Suspect]
     Route: 048
  3. ETHANOL [Suspect]
     Route: 048
  4. CODEINE [Suspect]
     Route: 048
  5. CHLORDIAZEPOXIDE [Suspect]
     Route: 048
  6. DIAZEPAM [Suspect]
     Route: 048

REACTIONS (1)
  - Completed suicide [None]
